FAERS Safety Report 23228598 (Version 1)
Quarter: 2023Q4

REPORT INFORMATION
  Report Type: Report from Study
  Country: NL (occurrence: NL)
  Receive Date: 20231125
  Receipt Date: 20231125
  Transmission Date: 20240110
  Serious: Yes (Death, Hospitalization)
  Sender: FDA-Public Use
  Company Number: NL-BAYER-2023A116539

PATIENT
  Age: 64 Year
  Sex: Male

DRUGS (1)
  1. ADEMPAS [Suspect]
     Active Substance: RIOCIGUAT
     Indication: Pulmonary hypertension
     Dosage: 2.5 MG
     Route: 048
     Dates: start: 20180502

REACTIONS (2)
  - Death [Fatal]
  - Oxygen saturation decreased [None]

NARRATIVE: CASE EVENT DATE: 20230811
